FAERS Safety Report 5884615-X (Version None)
Quarter: 2008Q3

REPORT INFORMATION
  Report Type: 
  Country: None (occurrence: None)
  Receive Date: 20080911
  Receipt Date: 20080829
  Transmission Date: 20090109
  Serious: Yes (Death, Life-Threatening, Hospitalization)
  Sender: FDA-Public Use
  Company Number: 94985

PATIENT
  Age: 18 Month
  Sex: Male

DRUGS (1)
  1. ACETAMINOPHEN [Suspect]

REACTIONS (2)
  - DRUG LEVEL INCREASED [None]
  - LIVER INJURY [None]
